FAERS Safety Report 5752362-0 (Version None)
Quarter: 2008Q2

REPORT INFORMATION
  Report Type: 
  Country: None (occurrence: None)
  Receive Date: 20080527
  Receipt Date: 20080513
  Transmission Date: 20081010
  Serious: Yes (Hospitalization)
  Sender: FDA-Public Use
  Company Number: SPV1-2008-01015

PATIENT
  Age: 57 Year
  Sex: Female

DRUGS (19)
  1. CARBATROL             (CARBMAZEPINE) [Suspect]
     Indication: ACCIDENTAL EXPOSURE
     Dosage: 700 MG, ONE DOSE,
  2. CLONAPIN        (CLONAZEPAM) [Suspect]
     Indication: ACCIDENTAL EXPOSURE
  3. BLINDED THERAPY [Concomitant]
  4. AMITRIPTYLENE     (AMITRIPTYLINE HYDROCHLORIDE) [Concomitant]
  5. IMITREX /01044801/(SUMATRIPTAN) [Concomitant]
  6. TETRACYCLINE [Concomitant]
  7. PROPRANOLOL [Concomitant]
  8. TYLENOL W/ CODEINE NO. 3 [Concomitant]
  9. GLUCOSAMINE + CHONDROITIN (CHONDROITIN SULFATE, GLUCOSAMINE) [Concomitant]
  10. VITAMINS NOS (VITAMINS NOS) [Concomitant]
  11. VITAMIN E /00110501/(TOCOPHEROL) [Concomitant]
  12. PEPCID           /00706001/(FAMOTIDINE) [Concomitant]
  13. ADVIL [Concomitant]
  14. MELATONIN       (MELATONIN) [Concomitant]
  15. TEGRETOL [Suspect]
     Indication: ACCIDENTAL EXPOSURE
  16. LAMICTAL [Suspect]
     Indication: ACCIDENTAL EXPOSURE
  17. ZOLOFT [Suspect]
     Indication: ACCIDENTAL EXPOSURE
  18. COLACE(DOCUSATE SODIUM) [Suspect]
     Indication: ACCIDENTAL EXPOSURE
  19. MELATONIN(MELATONIN) [Suspect]
     Indication: ACCIDENTAL EXPOSURE

REACTIONS (6)
  - ACCIDENTAL EXPOSURE [None]
  - CONFUSIONAL STATE [None]
  - INCONTINENCE [None]
  - LETHARGY [None]
  - SOMNOLENCE [None]
  - UNRESPONSIVE TO STIMULI [None]
